FAERS Safety Report 6264038-4 (Version None)
Quarter: 2009Q3

REPORT INFORMATION
  Report Type: 
  Country: None (occurrence: None)
  Receive Date: 20090710
  Receipt Date: 20090703
  Transmission Date: 20100115
  Serious: No
  Sender: FDA-Public Use
  Company Number: PHHY2009JP25297

PATIENT
  Age: 77 Year
  Sex: Male

DRUGS (9)
  1. TASIGNA [Suspect]
     Indication: CHRONIC MYELOID LEUKAEMIA
     Dosage: 800 MG/DAY
     Route: 048
     Dates: start: 20090430, end: 20090521
  2. TASIGNA [Suspect]
     Dosage: 400 MG/DAY
     Route: 048
     Dates: start: 20090522
  3. NAUZELIN [Concomitant]
     Dosage: 30 MG, UNK
     Route: 048
  4. MENESIT [Concomitant]
     Dosage: 300 MG, UNK
     Route: 048
  5. LASIX [Concomitant]
     Dosage: 20 MG, UNK
     Route: 048
  6. JUSO [Concomitant]
     Dosage: 1000 MG, UNK
     Route: 048
  7. TAKEPRON [Concomitant]
     Dosage: 15 MG, UNK
     Route: 048
  8. URSO 250 [Concomitant]
     Dosage: 600 MG, UNK
     Route: 048
  9. ALOSENN [Concomitant]
     Dosage: 0.5 G, UNK
     Route: 048

REACTIONS (2)
  - OEDEMA [None]
  - VOMITING [None]
